FAERS Safety Report 5181656-5 (Version None)
Quarter: 2006Q4

REPORT INFORMATION
  Report Type: 
  Country: None (occurrence: None)
  Receive Date: 20061220
  Receipt Date: 20060220
  Transmission Date: 20070319
  Serious: Yes (Other)
  Sender: FDA-Public Use
  Company Number: US-GLAXOSMITHKLINE-A0594321A

PATIENT
  Age: 72 Year
  Sex: Female

DRUGS (4)
  1. COMMIT [Suspect]
     Dosage: 2MG TWELVE TIMES PER DAY
     Dates: start: 20060217, end: 20060201
  2. COMMIT [Suspect]
     Dosage: 2MG TWELVE TIMES PER DAY
     Dates: start: 20020101
  3. NICORETTE (MINT) [Suspect]
     Dosage: 2MG TWELVE TIMES PER DAY
     Dates: start: 19950101, end: 20020101
  4. NICORETTE [Suspect]
     Dosage: 2MG TWELVE TIMES PER DAY
     Dates: start: 19950101, end: 20020101

REACTIONS (2)
  - DRUG ABUSER [None]
  - GLOSSODYNIA [None]
